FAERS Safety Report 7154409-6 (Version None)
Quarter: 2010Q4

REPORT INFORMATION
  Report Type: 
  Country: None (occurrence: None)
  Receive Date: 20101213
  Receipt Date: 20101207
  Transmission Date: 20110411
  Serious: Yes (Other)
  Sender: FDA-Public Use
  Company Number: US-ALLERGAN-1014371US

PATIENT
  Age: 26 Year
  Sex: Male

DRUGS (2)
  1. ZYMAXID [Suspect]
     Indication: INFECTION
     Dosage: UNK
     Route: 047
     Dates: start: 20101018, end: 20101026
  2. ZYMAXID [Suspect]
     Indication: CONJUNCTIVITIS

REACTIONS (3)
  - CORNEAL OPACITY [None]
  - HYPERSENSITIVITY [None]
  - KERATITIS [None]
